FAERS Safety Report 5535164-X (Version None)
Quarter: 2007Q4

REPORT INFORMATION
  Report Type: 
  Country: None (occurrence: None)
  Receive Date: 20071206
  Receipt Date: 20071130
  Transmission Date: 20080405
  Serious: Yes (Hospitalization, Other)
  Sender: FDA-Public Use
  Company Number: PHNU2007DE00965

PATIENT
  Sex: Male
  Weight: 90 kg

DRUGS (5)
  1. ABILIFY [Concomitant]
     Indication: SCHIZOAFFECTIVE DISORDER
     Dosage: 15 MG/DAY
     Dates: start: 20061122
  2. ERGENYL CHRONO [Concomitant]
     Indication: SCHIZOAFFECTIVE DISORDER
     Dosage: 2000 MG/DAY
  3. LEPONEX [Suspect]
     Indication: SCHIZOAFFECTIVE DISORDER
     Dosage: 400 MG/DAY
     Route: 048
     Dates: start: 20070118, end: 20070131
  4. NAC ^RATIOPHARM^ [Concomitant]
     Dosage: 600 MG/DAY
     Route: 048
  5. MAGNESIUM OXIDE [Concomitant]
     Dosage: 3 CAPSULES/DAY
     Route: 048

REACTIONS (17)
  - ALANINE AMINOTRANSFERASE INCREASED [None]
  - BACK PAIN [None]
  - BLOOD CREATINE PHOSPHOKINASE INCREASED [None]
  - BLOOD URIC ACID ABNORMAL [None]
  - BRADYCARDIA [None]
  - BRONCHOPNEUMONIA [None]
  - COUGH [None]
  - DISTURBANCE IN ATTENTION [None]
  - ECHOCARDIOGRAM ABNORMAL [None]
  - ELECTROCARDIOGRAM ABNORMAL [None]
  - GAIT DISTURBANCE [None]
  - LEUKOCYTOSIS [None]
  - MYOCARDITIS [None]
  - PERICARDIAL EFFUSION [None]
  - PERICARDITIS [None]
  - PYREXIA [None]
  - TACHYCARDIA [None]
